FAERS Safety Report 6112355-0 (Version None)
Quarter: 2009Q1

REPORT INFORMATION
  Report Type: 
  Country: None (occurrence: None)
  Receive Date: 20090311
  Receipt Date: 20090311
  Transmission Date: 20090719
  Serious: No
  Sender: FDA-Public Use
  Company Number: None

PATIENT
  Sex: Female
  Weight: 81.1939 kg

DRUGS (1)
  1. LEVOTHYROXINE SODIUM [Suspect]
     Indication: HYPOTHYROIDISM
     Dosage: 88 MCG QD PO
     Route: 048
     Dates: start: 20050901, end: 20060501

REACTIONS (4)
  - IRRITABLE BOWEL SYNDROME [None]
  - MENSTRUATION IRREGULAR [None]
  - MOOD ALTERED [None]
  - PRODUCT QUALITY ISSUE [None]
